FAERS Safety Report 4699161-9 (Version None)
Quarter: 2005Q2

REPORT INFORMATION
  Report Type: 
  Country: None (occurrence: None)
  Receive Date: 20050623
  Receipt Date: 20050623
  Transmission Date: 20051028
  Serious: No
  Sender: FDA-Public Use
  Company Number: None

PATIENT

DRUGS (4)
  1. EPOGEN [Suspect]
     Indication: ANAEMIA
     Dosage: WEEKLY SQ
     Route: 058
  2. EPOGEN [Suspect]
     Indication: RENAL FAILURE CHRONIC
     Dosage: WEEKLY SQ
     Route: 058
  3. EPOGEN [Suspect]
     Indication: ANAEMIA
     Dosage: WEEKLY SQ
     Route: 058
  4. EPOGEN [Suspect]
     Indication: RENAL FAILURE CHRONIC
     Dosage: WEEKLY SQ
     Route: 058

REACTIONS (2)
  - DRUG DISPENSING ERROR [None]
  - MEDICATION ERROR [None]
